FAERS Safety Report 25012536 (Version 1)
Quarter: 2025Q1

REPORT INFORMATION
  Report Type: Report from Study
  Country: CA (occurrence: CA)
  Receive Date: 20250226
  Receipt Date: 20250226
  Transmission Date: 20250408
  Serious: Yes (Other)
  Sender: TAKEDA
  Company Number: CA-TAKEDA-2024TUS128061

PATIENT
  Sex: Female

DRUGS (1)
  1. FRUQUINTINIB [Suspect]
     Active Substance: FRUQUINTINIB
     Indication: Colorectal cancer metastatic

REACTIONS (5)
  - Colorectal cancer metastatic [Unknown]
  - Headache [Unknown]
  - Chest pain [Unknown]
  - Blood pressure increased [Unknown]
  - Hypertension [Recovered/Resolved]
